FAERS Safety Report 6318930-2 (Version None)
Quarter: 2009Q3

REPORT INFORMATION
  Report Type: 
  Country: None (occurrence: None)
  Receive Date: 20090821
  Receipt Date: 20081010
  Transmission Date: 20100115
  Serious: No
  Sender: FDA-Public Use
  Company Number: US-ABBOTT-08P-163-0481320-00

PATIENT
  Sex: Female

DRUGS (11)
  1. NIASPAN [Suspect]
     Indication: BLOOD CHOLESTEROL INCREASED
     Dates: start: 20080801, end: 20081001
  2. CLOPIDOGREL [Concomitant]
     Indication: DRUG USE FOR UNKNOWN INDICATION
  3. FUROSEMIDE [Concomitant]
     Indication: DRUG USE FOR UNKNOWN INDICATION
  4. VICODIN [Concomitant]
     Indication: DRUG USE FOR UNKNOWN INDICATION
  5. WARFARIN SODIUM [Concomitant]
     Indication: DRUG USE FOR UNKNOWN INDICATION
  6. FENOFIBRATE [Concomitant]
     Indication: DRUG USE FOR UNKNOWN INDICATION
  7. CALCIUM-SANDOZ [Concomitant]
     Indication: DRUG USE FOR UNKNOWN INDICATION
  8. VENLAFAXINE HCL [Concomitant]
     Indication: DRUG USE FOR UNKNOWN INDICATION
  9. METOPROLOL [Concomitant]
     Indication: DRUG USE FOR UNKNOWN INDICATION
  10. GLYCERYL TRINITRATE [Concomitant]
     Indication: DRUG USE FOR UNKNOWN INDICATION
  11. INSULIN [Concomitant]
     Indication: DRUG USE FOR UNKNOWN INDICATION

REACTIONS (2)
  - PRURITUS [None]
  - SKIN BURNING SENSATION [None]
